FAERS Safety Report 7600352-5 (Version None)
Quarter: 2011Q3

REPORT INFORMATION
  Report Type: 
  Country: None (occurrence: None)
  Receive Date: 20110711
  Receipt Date: 20110629
  Transmission Date: 20111222
  Serious: Yes (Hospitalization)
  Sender: FDA-Public Use
  Company Number: KR-BAYER-2011-054802

PATIENT
  Age: 21 Year
  Sex: Male

DRUGS (3)
  1. PREDNISOLONE [Suspect]
  2. MESALAMINE [Suspect]
     Dosage: UNK
  3. BETASERON [Suspect]

REACTIONS (6)
  - VENA CAVA THROMBOSIS [None]
  - PYREXIA [None]
  - PANCREATIC ENLARGEMENT [None]
  - ABDOMINAL PAIN UPPER [None]
  - NAUSEA [None]
  - PANCREATITIS ACUTE [None]
